FAERS Safety Report 10128772 (Version 1)
Quarter: 2014Q2

REPORT INFORMATION
  Report Type: Spontaneous
  Country: IT (occurrence: IT)
  Receive Date: 20140428
  Receipt Date: 20140428
  Transmission Date: 20141212
  Serious: Yes (Other)
  Sender: FDA-Public Use
  Company Number: IT-TEVA-471079ISR

PATIENT
  Age: 11 Month
  Sex: Female

DRUGS (1)
  1. AMOXICILLIN W/CLAVULANIC ACID [Suspect]
     Indication: EAR INFECTION
     Dates: start: 20140121, end: 20140125

REACTIONS (1)
  - Dysentery [Recovering/Resolving]
